FAERS Safety Report 4897546-9 (Version None)
Quarter: 2006Q1

REPORT INFORMATION
  Report Type: 
  Country: None (occurrence: None)
  Receive Date: 20060130
  Receipt Date: 20060130
  Transmission Date: 20060701
  Serious: No
  Sender: FDA-Public Use
  Company Number: None

PATIENT
  Sex: Male

DRUGS (1)
  1. COMBIVIR [Suspect]
     Indication: HIV INFECTION
     Dosage: 150/300 BID PO
     Route: 048
     Dates: start: 20000331, end: 20051123

REACTIONS (1)
  - ANAEMIA [None]
